FAERS Safety Report 11942620 (Version 1)
Quarter: 2016Q1

REPORT INFORMATION
  Report Type: Spontaneous
  Country: US (occurrence: US)
  Receive Date: 20160125
  Receipt Date: 20160125
  Transmission Date: 20160526
  Serious: No
  Sender: FDA-Public Use
  Company Number: US-UNITED THERAPEUTICS-UNT-2015-006702

PATIENT
  Age: 52 Year
  Sex: Female
  Weight: 56.19 kg

DRUGS (3)
  1. REMODULIN [Suspect]
     Active Substance: TREPROSTINIL
     Indication: PULMONARY ARTERIAL HYPERTENSION
     Dosage: 0.00125 ?G/KG/MIN, CONTINUING
     Route: 058
     Dates: start: 20150523
  2. LETAIRIS [Concomitant]
     Active Substance: AMBRISENTAN
     Indication: PRODUCT USED FOR UNKNOWN INDICATION
  3. TYVASO [Suspect]
     Active Substance: TREPROSTINIL
     Indication: PULMONARY ARTERIAL HYPERTENSION
     Dosage: 18-54 ?G, QID
     Dates: start: 20150701

REACTIONS (8)
  - Headache [Recovered/Resolved]
  - Vomiting [Unknown]
  - Infusion site pain [Not Recovered/Not Resolved]
  - Sinusitis [Unknown]
  - Ear discomfort [Recovered/Resolved]
  - Nausea [Unknown]
  - Localised oedema [Unknown]
  - Nasal dryness [Unknown]

NARRATIVE: CASE EVENT DATE: 2015
